FAERS Safety Report 6221151-5 (Version None)
Quarter: 2009Q2

REPORT INFORMATION
  Report Type: 
  Country: None (occurrence: None)
  Receive Date: 20090608
  Receipt Date: 20090525
  Transmission Date: 20091009
  Serious: Yes (Other)
  Sender: FDA-Public Use
  Company Number: 8047170

PATIENT
  Sex: Male

DRUGS (1)
  1. KEPPRA [Suspect]

REACTIONS (2)
  - HAEMORRHAGIC DIATHESIS [None]
  - THROMBOCYTOPENIA [None]
